FAERS Safety Report 19453922 (Version 1)
Quarter: 2021Q2

REPORT INFORMATION
  Report Type: Spontaneous
  Country: FR (occurrence: FR)
  Receive Date: 20210623
  Receipt Date: 20210623
  Transmission Date: 20210717
  Serious: Yes (Life-Threatening, Hospitalization)
  Sender: FDA-Public Use
  Company Number: FR-TEVA-2021-FR-1924507

PATIENT
  Age: 67 Year
  Sex: Male

DRUGS (3)
  1. FLUOROURACIL. [Concomitant]
     Active Substance: FLUOROURACIL
     Indication: COLON CANCER METASTATIC
     Dosage: ROUTE: INFUSION
     Route: 050
  2. OXALIPLATIN. [Suspect]
     Active Substance: OXALIPLATIN
     Indication: COLON CANCER METASTATIC
     Dosage: ROUTE: INFUSION
     Route: 050
  3. FOLINIC ACID [Concomitant]
     Active Substance: LEUCOVORIN
     Indication: COLON CANCER METASTATIC
     Dosage: ROUTE: INFUSION
     Route: 050

REACTIONS (2)
  - Acute kidney injury [Recovered/Resolved]
  - Evans syndrome [Recovering/Resolving]
